FAERS Safety Report 21847555 (Version 2)
Quarter: 2023Q2

REPORT INFORMATION
  Report Type: Report from Study
  Country: GB (occurrence: GB)
  Receive Date: 20230111
  Receipt Date: 20230608
  Transmission Date: 20230721
  Serious: Yes (Hospitalization, Other)
  Sender: FDA-Public Use
  Company Number: GB-002147023-NVSC2019GB038640

PATIENT
  Age: 78 Year
  Sex: Female

DRUGS (3)
  1. ERELZI [Suspect]
     Active Substance: ETANERCEPT-SZZS
     Indication: Rheumatoid arthritis
     Dosage: 50 MG, (ERELZI 50MG/1ML PEN)
     Route: 058
  2. ERELZI [Suspect]
     Active Substance: ETANERCEPT-SZZS
     Indication: Psoriatic arthropathy
     Dosage: UNK UNK, QW
     Route: 065
     Dates: start: 20220512
  3. ERELZI [Suspect]
     Active Substance: ETANERCEPT-SZZS
     Indication: Psoriasis
     Dosage: UNK
     Route: 058

REACTIONS (15)
  - Myocardial infarction [Unknown]
  - Rectal prolapse [Unknown]
  - Haemorrhage [Unknown]
  - Pain in extremity [Unknown]
  - Contusion [Unknown]
  - Toothache [Unknown]
  - Blood test abnormal [Unknown]
  - Cardiac disorder [Unknown]
  - Pleural effusion [Unknown]
  - Road traffic accident [Unknown]
  - Dyspnoea [Unknown]
  - Infection [Not Recovered/Not Resolved]
  - Burning sensation [Unknown]
  - Erythema [Unknown]
  - Product storage error [Unknown]
